FAERS Safety Report 11512375 (Version 3)
Quarter: 2015Q4

REPORT INFORMATION
  Report Type: Report from Study
  Country: US (occurrence: US)
  Receive Date: 20150916
  Receipt Date: 20151028
  Transmission Date: 20160304
  Serious: Yes (Hospitalization, Other)
  Sender: FDA-Public Use
  Company Number: US-AMGEN-USASL2015094423

PATIENT
  Age: 65 Year
  Sex: Female

DRUGS (2)
  1. ENBREL [Suspect]
     Active Substance: ETANERCEPT
     Indication: RHEUMATOID ARTHRITIS
     Dosage: 50 MG, QWK
     Route: 065
     Dates: start: 20140807, end: 20150730
  2. METHOTREXATE [Concomitant]
     Active Substance: METHOTREXATE
     Dosage: 8 DF, QWK

REACTIONS (10)
  - Vomiting [Unknown]
  - Dysstasia [Unknown]
  - Arthralgia [Unknown]
  - Hernia repair [Unknown]
  - Liver function test abnormal [Unknown]
  - Mobility decreased [Unknown]
  - Abdominal hernia [Unknown]
  - Musculoskeletal pain [Unknown]
  - Pain [Unknown]
  - Musculoskeletal stiffness [Unknown]

NARRATIVE: CASE EVENT DATE: 201507
